FAERS Safety Report 5483291-8 (Version None)
Quarter: 2007Q4

REPORT INFORMATION
  Report Type: 
  Country: None (occurrence: None)
  Receive Date: 20071012
  Receipt Date: 20071003
  Transmission Date: 20080405
  Serious: Yes (Other)
  Sender: FDA-Public Use
  Company Number: PHEH2007US13241

PATIENT
  Sex: Female

DRUGS (1)
  1. LOTREL [Suspect]
     Indication: HYPERTENSION
     Dosage: 10/40, QD
     Route: 048

REACTIONS (3)
  - ASTHENIA [None]
  - BLOOD POTASSIUM ABNORMAL [None]
  - BLOOD PRESSURE FLUCTUATION [None]
